FAERS Safety Report 4949363-9 (Version None)
Quarter: 2006Q1

REPORT INFORMATION
  Report Type: 
  Country: None (occurrence: None)
  Receive Date: 20060321
  Receipt Date: 20060221
  Transmission Date: 20060701
  Serious: Yes (Hospitalization)
  Sender: FDA-Public Use
  Company Number: NO-AMGEN-UK170009

PATIENT
  Age: 24 Year
  Sex: Male
  Weight: 75 kg

DRUGS (8)
  1. NEULASTA [Suspect]
     Indication: CHEMOTHERAPY
     Route: 065
     Dates: start: 20060204
  2. NEUPOGEN [Suspect]
     Indication: CHEMOTHERAPY
     Route: 065
     Dates: start: 20060304
  3. RITUXIMAB [Suspect]
     Route: 065
     Dates: start: 20060201
  4. CYCLOPHOSPHAMIDE [Concomitant]
     Route: 065
     Dates: start: 20060201
  5. DOXORUBICIN HCL [Concomitant]
     Route: 065
     Dates: start: 20060201
  6. VINCRISTINE [Concomitant]
     Route: 065
     Dates: start: 20060201
  7. PREDNISONE TAB [Concomitant]
     Route: 065
     Dates: start: 20060201
  8. ETOPOSIDE [Concomitant]
     Route: 065
     Dates: start: 20060201

REACTIONS (7)
  - ABDOMINAL PAIN [None]
  - C-REACTIVE PROTEIN INCREASED [None]
  - FLATULENCE [None]
  - LEUKOCYTOSIS [None]
  - PLATELET COUNT DECREASED [None]
  - PYREXIA [None]
  - THROMBOCYTOPENIA [None]
